FAERS Safety Report 18328486 (Version 2)
Quarter: 2020Q4

REPORT INFORMATION
  Report Type: Spontaneous
  Country: ES (occurrence: ES)
  Receive Date: 20200930
  Receipt Date: 20201022
  Transmission Date: 20210113
  Serious: Yes (Hospitalization, Other)
  Sender: FDA-Public Use
  Company Number: ES-AUROBINDO-AUR-APL-2012-03539

PATIENT
  Age: 47 Year
  Sex: Female

DRUGS (7)
  1. OMEPRAZOLE. [Suspect]
     Active Substance: OMEPRAZOLE
     Indication: PEPTIC ULCER HELICOBACTER
  2. CLARITHROMYCIN. [Suspect]
     Active Substance: CLARITHROMYCIN
     Indication: HELICOBACTER INFECTION
     Dosage: UNK
     Route: 065
  3. OMEPRAZOLE. [Suspect]
     Active Substance: OMEPRAZOLE
     Indication: HELICOBACTER INFECTION
     Dosage: UNK
     Route: 065
  4. AMOXICILLIN. [Suspect]
     Active Substance: AMOXICILLIN
     Indication: HELICOBACTER INFECTION
     Dosage: UNK
     Route: 065
  5. AMOXICILLIN. [Suspect]
     Active Substance: AMOXICILLIN
     Indication: PEPTIC ULCER HELICOBACTER
  6. CLARITHROMYCIN. [Suspect]
     Active Substance: CLARITHROMYCIN
     Indication: PEPTIC ULCER HELICOBACTER
  7. AMOXICILLIN. [Suspect]
     Active Substance: AMOXICILLIN
     Indication: HELICOBACTER INFECTION

REACTIONS (12)
  - Behaviour disorder [Recovered/Resolved]
  - Tangentiality [Recovered/Resolved]
  - Psychomotor hyperactivity [Recovered/Resolved]
  - Energy increased [Recovered/Resolved]
  - Insomnia [Recovered/Resolved]
  - Pressure of speech [Recovered/Resolved]
  - Delusion of grandeur [Recovered/Resolved]
  - Irritability [Recovered/Resolved]
  - Hypomania [Not Recovered/Not Resolved]
  - Mood altered [Not Recovered/Not Resolved]
  - Bipolar I disorder [Recovered/Resolved]
  - Mania [Recovered/Resolved]
